FAERS Safety Report 14024971 (Version 2)
Quarter: 2017Q4

REPORT INFORMATION
  Report Type: Report from Study
  Country: CA (occurrence: CA)
  Receive Date: 20170929
  Receipt Date: 20171029
  Transmission Date: 20180321
  Serious: Yes (Other)
  Sender: FDA-Public Use
  Company Number: CA-ALEXION-A201709409

PATIENT
  Age: 18 Year
  Sex: Male
  Weight: 46 kg

DRUGS (5)
  1. VITAMIN B12 [Concomitant]
     Active Substance: CYANOCOBALAMIN
     Indication: SUPPLEMENTATION THERAPY
     Dosage: UNK, QMONTH
     Route: 030
  2. SOLIRIS [Suspect]
     Active Substance: ECULIZUMAB
     Dosage: 900 MG, Q2W
     Route: 042
     Dates: start: 20170523
  3. FERROUS SULFATE. [Concomitant]
     Active Substance: FERROUS SULFATE
     Indication: MINERAL SUPPLEMENTATION
     Dosage: 300 MG, QD
     Route: 048
  4. SOLIRIS [Suspect]
     Active Substance: ECULIZUMAB
     Indication: PAROXYSMAL NOCTURNAL HAEMOGLOBINURIA
     Dosage: 600 MG, QW
     Route: 042
     Dates: start: 20170425
  5. FOLIC ACID. [Concomitant]
     Active Substance: FOLIC ACID
     Indication: SUPPLEMENTATION THERAPY
     Dosage: 5 MG, QD
     Route: 048

REACTIONS (25)
  - Neutrophil count decreased [Unknown]
  - Reticulocyte count increased [Unknown]
  - Blood chloride increased [Unknown]
  - Platelet count decreased [Unknown]
  - Macrocytosis [Unknown]
  - Anion gap increased [Unknown]
  - Red cell distribution width increased [Unknown]
  - Carboxyhaemoglobin increased [Unknown]
  - Methaemoglobinaemia [Unknown]
  - Blood albumin decreased [Unknown]
  - Blood fibrinogen increased [Unknown]
  - Haptoglobin decreased [Unknown]
  - Polychromasia [Unknown]
  - International normalised ratio increased [Unknown]
  - Haematocrit decreased [Unknown]
  - Bilirubin conjugated increased [Unknown]
  - Red blood cell count decreased [Unknown]
  - Mean cell volume increased [Unknown]
  - Blood potassium decreased [Unknown]
  - Haemolysis [Unknown]
  - Haemoglobin decreased [Unknown]
  - Blood bilirubin increased [Unknown]
  - Blood lactate dehydrogenase increased [Unknown]
  - White blood cell count decreased [Unknown]
  - Lymphocyte count decreased [Unknown]

NARRATIVE: CASE EVENT DATE: 20170401
